FAERS Safety Report 15977022 (Version 1)
Quarter: 2019Q1

REPORT INFORMATION
  Report Type: Report from Study
  Country: CA (occurrence: CA)
  Receive Date: 20190218
  Receipt Date: 20190218
  Transmission Date: 20190418
  Serious: Yes (Other)
  Sender: FDA-Public Use
  Company Number: CA-JNJFOC-20190107004

PATIENT
  Age: 73 Year
  Sex: Male
  Weight: 65.2 kg

DRUGS (1)
  1. REMICADE [Suspect]
     Active Substance: INFLIXIMAB
     Indication: CROHN^S DISEASE
     Dosage: STRENGTH = 100 MG
     Route: 042
     Dates: start: 20091010

REACTIONS (4)
  - Bronchitis [Unknown]
  - Sensory disturbance [Unknown]
  - Pulmonary mass [Unknown]
  - Chest discomfort [Unknown]

NARRATIVE: CASE EVENT DATE: 201812
